FAERS Safety Report 9710104 (Version 1)
Quarter: 2013Q4

REPORT INFORMATION
  Report Type: Spontaneous
  Country: DE (occurrence: DE)
  Receive Date: 20131126
  Receipt Date: 20131126
  Transmission Date: 20140711
  Serious: Yes (Other)
  Sender: FDA-Public Use
  Company Number: DE-JNJFOC-20131110733

PATIENT
  Age: 63 Year
  Sex: Female

DRUGS (1)
  1. LISTERINE UNSPECIFIED [Suspect]
     Indication: PRODUCT USED FOR UNKNOWN INDICATION
     Route: 048

REACTIONS (3)
  - Gastric ulcer [Unknown]
  - Abdominal discomfort [Not Recovered/Not Resolved]
  - Oral discomfort [Recovering/Resolving]
